FAERS Safety Report 8189108-5 (Version None)
Quarter: 2012Q1

REPORT INFORMATION
  Report Type: 
  Country: None (occurrence: None)
  Receive Date: 20120307
  Receipt Date: 20120229
  Transmission Date: 20120608
  Serious: No
  Sender: FDA-Public Use
  Company Number: US-BIOGENIDEC-2012BI007549

PATIENT
  Age: 48 Year
  Sex: Female

DRUGS (3)
  1. AVONEX [Suspect]
     Indication: MULTIPLE SCLEROSIS
     Route: 030
  2. AVONEX [Suspect]
     Route: 030
     Dates: start: 20010412, end: 20081001
  3. AVONEX [Suspect]
     Route: 030
     Dates: start: 20090805

REACTIONS (3)
  - MULTIPLE SCLEROSIS RELAPSE [None]
  - CONFUSIONAL STATE [None]
  - FEELING ABNORMAL [None]
